FAERS Safety Report 17345666 (Version 2)
Quarter: 2022Q1

REPORT INFORMATION
  Report Type: Spontaneous
  Country: DE (occurrence: DE)
  Receive Date: 20200129
  Receipt Date: 20220304
  Transmission Date: 20220423
  Serious: Yes (Death, Other)
  Sender: FDA-Public Use
  Company Number: DE-TEVA-2020-DE-1175189

PATIENT
  Age: 73 Year
  Sex: Female
  Weight: 76 kg

DRUGS (7)
  1. FENTANYL [Interacting]
     Active Substance: FENTANYL
     Dosage: 50 MICROG/ H  (TOTAL: 100 MICROG/ H ); ADDITIONAL INFO: MISUSE
     Route: 062
  2. MORPHINE [Interacting]
     Active Substance: MORPHINE
     Indication: Mobility decreased
     Dosage: FOR 20 YEARS
     Route: 065
  3. MIRTAZAPINE [Interacting]
     Active Substance: MIRTAZAPINE
     Route: 065
  4. METOPROLOL [Interacting]
     Active Substance: METOPROLOL
     Route: 065
  5. ZOPICLONE [Interacting]
     Active Substance: ZOPICLONE
     Route: 065
  6. AMLODIPINE [Interacting]
     Active Substance: AMLODIPINE BESYLATE
     Route: 065
  7. CANDESARTAN [Interacting]
     Active Substance: CANDESARTAN
     Route: 065

REACTIONS (6)
  - Pulmonary oedema [Unknown]
  - Urinary retention [Unknown]
  - Toxicity to various agents [Fatal]
  - Asphyxia [Fatal]
  - Drug interaction [Fatal]
  - Intentional product misuse [Fatal]
